FAERS Safety Report 9812591 (Version 3)
Quarter: 2019Q1

REPORT INFORMATION
  Report Type: Report from Study
  Country: IT (occurrence: IT)
  Receive Date: 20140113
  Receipt Date: 20190125
  Transmission Date: 20190418
  Serious: Yes (Other)
  Sender: FDA-Public Use
  Company Number: IT-ROCHE-1332471

PATIENT

DRUGS (3)
  1. BENDAMUSTINE [Suspect]
     Active Substance: BENDAMUSTINE
     Indication: B-CELL LYMPHOMA
     Dosage: ON DAY 1-2 OR DAY 2-3 OF CYCLE (FROM CYCLE 1-6)
     Route: 042
  2. COTRIMOXAZOLE [Concomitant]
     Active Substance: SULFAMETHOXAZOLE\TRIMETHOPRIM
     Route: 065
  3. RITUXIMAB. [Suspect]
     Active Substance: RITUXIMAB
     Indication: B-CELL LYMPHOMA
     Dosage: ON DAY 1 OF 28 DAYS CYCLE (CYCLE 1-8)
     Route: 042

REACTIONS (18)
  - Febrile neutropenia [Unknown]
  - Rash [Unknown]
  - Infection [Unknown]
  - Vomiting [Unknown]
  - Neutropenia [Unknown]
  - Muscular weakness [Unknown]
  - Nausea [Unknown]
  - Hypersensitivity [Unknown]
  - Weight decreased [Unknown]
  - Thrombocytopenia [Unknown]
  - Thrombosis [Unknown]
  - Embolism [Unknown]
  - Anaemia [Unknown]
  - Leukopenia [Unknown]
  - Syncope [Unknown]
  - Pneumonia [Unknown]
  - Myocarditis [Unknown]
  - Metastasis [Unknown]
